FAERS Safety Report 17449621 (Version 2)
Quarter: 2020Q1

REPORT INFORMATION
  Report Type: Spontaneous
  Country: SG (occurrence: SG)
  Receive Date: 20200224
  Receipt Date: 20200326
  Transmission Date: 20200409
  Serious: Yes (Hospitalization, Other)
  Sender: FDA-Public Use
  Company Number: SG-ROCHE-2551952

PATIENT
  Age: 69 Year
  Sex: Male

DRUGS (3)
  1. PEMETREXED. [Suspect]
     Active Substance: PEMETREXED
     Indication: EPITHELIOID MESOTHELIOMA
     Route: 065
  2. AVASTIN [Suspect]
     Active Substance: BEVACIZUMAB
     Indication: EPITHELIOID MESOTHELIOMA
     Route: 042
  3. PLATINUM [Suspect]
     Active Substance: PLATINUM
     Indication: EPITHELIOID MESOTHELIOMA
     Route: 065

REACTIONS (4)
  - Pyelonephritis [Recovered/Resolved]
  - Hypotension [Recovered/Resolved]
  - Myocardial ischaemia [Unknown]
  - Escherichia bacteraemia [Recovered/Resolved]
